FAERS Safety Report 4802729-X (Version None)
Quarter: 2005Q4

REPORT INFORMATION
  Report Type: 
  Country: None (occurrence: None)
  Receive Date: 20051014
  Receipt Date: 20041102
  Transmission Date: 20060501
  Serious: Yes (Life-Threatening)
  Sender: FDA-Public Use
  Company Number: 04P-163-0279518-00

PATIENT
  Age: 36 Year
  Sex: Male

DRUGS (2)
  1. KALETRA [Suspect]
     Indication: HIV INFECTION
     Dosage: 666 MG, 2 IN 1 D,  ORAL
     Route: 048
     Dates: start: 20030715
  2. EFAVIRENZ [Suspect]
     Indication: HIV INFECTION
     Dosage: 600 MG, 2 IN 1 D, ORAL
     Route: 048
     Dates: start: 20030715

REACTIONS (1)
  - HYPERCHOLESTEROLAEMIA [None]
